FAERS Safety Report 14860211 (Version 1)
Quarter: 2018Q2

REPORT INFORMATION
  Report Type: Spontaneous
  Country: CN (occurrence: CN)
  Receive Date: 20180508
  Receipt Date: 20180508
  Transmission Date: 20180711
  Serious: Yes (Hospitalization, Other)
  Sender: FDA-Public Use
  Company Number: CN-PFIZER INC-2018184500

PATIENT
  Age: 70 Year
  Sex: Male
  Weight: 65 kg

DRUGS (3)
  1. METHYLPREDNISOLONE SODIUM SUCCINATE. [Suspect]
     Active Substance: METHYLPREDNISOLONE SODIUM SUCCINATE
     Indication: WHEEZING
     Dosage: 80 MG, 1X/DAY
     Route: 042
     Dates: start: 20180303, end: 20180304
  2. METHYLPREDNISOLONE SODIUM SUCCINATE. [Suspect]
     Active Substance: METHYLPREDNISOLONE SODIUM SUCCINATE
     Dosage: 40 MG, 1X/DAY
     Route: 042
     Dates: start: 20180305, end: 20180305
  3. LEVOFLOXACIN LACTATE AND SODIUM CHLORIDE [Concomitant]
     Indication: INFECTION
     Dosage: 0.5 G, 1X/DAY
     Route: 041
     Dates: start: 20180301, end: 20180305

REACTIONS (3)
  - Myopathy [Recovering/Resolving]
  - Unresponsive to stimuli [Recovering/Resolving]
  - Dizziness [Recovering/Resolving]

NARRATIVE: CASE EVENT DATE: 20180306
